FAERS Safety Report 23044161 (Version 9)
Quarter: 2025Q1

REPORT INFORMATION
  Report Type: Report from Study
  Country: US (occurrence: US)
  Receive Date: 20231009
  Receipt Date: 20250130
  Transmission Date: 20250409
  Serious: Yes (Other)
  Sender: ABBVIE
  Company Number: US-ABBVIE-5438011

PATIENT
  Age: 67 Year
  Sex: Female

DRUGS (17)
  1. RINVOQ [Suspect]
     Active Substance: UPADACITINIB
     Indication: Rheumatoid arthritis
     Route: 048
     Dates: start: 20221013
  2. RINVOQ [Suspect]
     Active Substance: UPADACITINIB
     Indication: Rheumatoid arthritis
     Route: 048
  3. RINVOQ [Suspect]
     Active Substance: UPADACITINIB
     Indication: Rheumatoid arthritis
     Route: 048
  4. RINVOQ [Suspect]
     Active Substance: UPADACITINIB
     Indication: Rheumatoid arthritis
     Route: 048
  5. RINVOQ [Suspect]
     Active Substance: UPADACITINIB
     Indication: Rheumatoid arthritis
     Route: 048
  6. RINVOQ [Suspect]
     Active Substance: UPADACITINIB
     Indication: Rheumatoid arthritis
     Route: 048
     Dates: start: 20221002
  7. BETAMETHASONE\CLOTRIMAZOLE [Concomitant]
     Active Substance: BETAMETHASONE\CLOTRIMAZOLE
     Indication: Product used for unknown indication
     Route: 061
  8. MORPHINE [Concomitant]
     Active Substance: MORPHINE
     Indication: Product used for unknown indication
  9. TRAMADOL [Concomitant]
     Active Substance: TRAMADOL
     Indication: Sleep disorder
  10. GABAPENTIN [Concomitant]
     Active Substance: GABAPENTIN
     Indication: Product used for unknown indication
  11. YUVAFEM [Concomitant]
     Active Substance: ESTRADIOL HEMIHYDRATE
     Indication: Product used for unknown indication
  12. LEFLUNOMIDE [Concomitant]
     Active Substance: LEFLUNOMIDE
     Indication: Product used for unknown indication
  13. SSD [Concomitant]
     Active Substance: SILVER SULFADIAZINE
     Indication: Product used for unknown indication
  14. ZINC [Concomitant]
     Active Substance: ZINC
     Indication: Product used for unknown indication
  15. HYDROXYCHLOROQUINE [Concomitant]
     Active Substance: HYDROXYCHLOROQUINE
     Indication: Product used for unknown indication
  16. REFRESH PLUS [Concomitant]
     Active Substance: CARBOXYMETHYLCELLULOSE SODIUM
     Indication: Product used for unknown indication
  17. LEVOTHYROXINE [Concomitant]
     Active Substance: LEVOTHYROXINE
     Indication: Product used for unknown indication

REACTIONS (43)
  - Surgery [Recovering/Resolving]
  - Blood pressure abnormal [Not Recovered/Not Resolved]
  - Dysphemia [Unknown]
  - Hypoaesthesia [Unknown]
  - Intervertebral disc protrusion [Recovering/Resolving]
  - Female reproductive neoplasm [Not Recovered/Not Resolved]
  - Gastric infection [Unknown]
  - Movement disorder [Not Recovered/Not Resolved]
  - Nervous system disorder [Recovering/Resolving]
  - Spinal osteoarthritis [Unknown]
  - Neuropathy peripheral [Recovered/Resolved]
  - Hemiplegia [Unknown]
  - Swelling [Not Recovered/Not Resolved]
  - Illness [Unknown]
  - Poor quality sleep [Unknown]
  - Stress [Not Recovered/Not Resolved]
  - Hypophagia [Unknown]
  - Pain [Not Recovered/Not Resolved]
  - Psoriasis [Unknown]
  - Rheumatoid arthritis [Recovered/Resolved]
  - Rheumatoid arthritis [Unknown]
  - Weight decreased [Not Recovered/Not Resolved]
  - Genital rash [Not Recovered/Not Resolved]
  - Immunodeficiency [Unknown]
  - Dry eye [Unknown]
  - Extrasystoles [Not Recovered/Not Resolved]
  - Arthritis [Unknown]
  - Dysstasia [Unknown]
  - Vein disorder [Not Recovered/Not Resolved]
  - Gait disturbance [Not Recovered/Not Resolved]
  - Mobility decreased [Unknown]
  - Gait disturbance [Unknown]
  - Bone graft [Unknown]
  - Cataract [Unknown]
  - Skin infection [Unknown]
  - Dyspnoea [Not Recovered/Not Resolved]
  - Weight bearing difficulty [Not Recovered/Not Resolved]
  - Weight increased [Unknown]
  - Exercise lack of [Unknown]
  - Hypotension [Not Recovered/Not Resolved]
  - Vascular pain [Unknown]
  - Carpal tunnel syndrome [Recovered/Resolved]
  - Brain fog [Unknown]

NARRATIVE: CASE EVENT DATE: 20230901
